FAERS Safety Report 13677714 (Version 2)
Quarter: 2020Q3

REPORT INFORMATION
  Report Type: Report from Study
  Country: GB (occurrence: GB)
  Receive Date: 20170622
  Receipt Date: 20170707
  Transmission Date: 20201104
  Serious: Yes (Hospitalization)
  Sender: FDA-Public Use
  Company Number: GB-ASTRAZENECA-2016SF31784

PATIENT
  Age: 21218 Day
  Sex: Female

DRUGS (16)
  1. MEDI4736 [Suspect]
     Active Substance: DURVALUMAB
     Indication: NON-SMALL CELL LUNG CANCER
     Route: 042
     Dates: start: 20160803, end: 20160803
  2. PREDNISOLONE. [Concomitant]
     Active Substance: PREDNISOLONE
     Indication: HYPOPHYSITIS
     Route: 048
     Dates: start: 20161203, end: 20161209
  3. MEDI4736 [Suspect]
     Active Substance: DURVALUMAB
     Indication: NON-SMALL CELL LUNG CANCER
     Route: 042
     Dates: start: 20160928, end: 20160928
  4. MEDI4736 [Suspect]
     Active Substance: DURVALUMAB
     Indication: NON-SMALL CELL LUNG CANCER
     Route: 042
     Dates: start: 20161026
  5. TREMELIMUMAB. [Suspect]
     Active Substance: TREMELIMUMAB
     Indication: NON-SMALL CELL LUNG CANCER
     Route: 042
     Dates: start: 20160928, end: 20160928
  6. TREMELIMUMAB. [Suspect]
     Active Substance: TREMELIMUMAB
     Indication: NON-SMALL CELL LUNG CANCER
     Route: 042
     Dates: start: 20160803, end: 20160803
  7. TREMELIMUMAB. [Suspect]
     Active Substance: TREMELIMUMAB
     Indication: NON-SMALL CELL LUNG CANCER
     Route: 042
     Dates: start: 20161026
  8. IBUPROFEN. [Concomitant]
     Active Substance: IBUPROFEN
     Indication: PAIN
     Route: 048
  9. LANSOPRAZOLE. [Concomitant]
     Active Substance: LANSOPRAZOLE
     Indication: PROPHYLAXIS
     Route: 048
     Dates: start: 20161107, end: 20170426
  10. MEDI4736 [Suspect]
     Active Substance: DURVALUMAB
     Indication: NON-SMALL CELL LUNG CANCER
     Route: 042
     Dates: start: 20160831, end: 20160831
  11. PARACETAMOL [Concomitant]
     Active Substance: ACETAMINOPHEN
     Indication: PAIN
     Route: 048
  12. FOLIC ACID. [Concomitant]
     Active Substance: FOLIC ACID
     Indication: PREMEDICATION
     Route: 048
     Dates: start: 20160720
  13. TREMELIMUMAB. [Suspect]
     Active Substance: TREMELIMUMAB
     Indication: NON-SMALL CELL LUNG CANCER
     Route: 042
     Dates: start: 20160831, end: 20160831
  14. CODEINE [Concomitant]
     Active Substance: CODEINE
     Indication: PAIN
     Route: 048
  15. DULCOLAX NOS [Concomitant]
     Active Substance: BISACODYL OR DOCUSATE SODIUM
     Indication: CONSTIPATION
     Dosage: 4 SACHET DAILY
     Route: 048
  16. METOCLOPRAMIDE. [Concomitant]
     Active Substance: METOCLOPRAMIDE
     Indication: NAUSEA
     Dosage: 10.0MG AS REQUIRED
     Route: 048
     Dates: start: 20160703

REACTIONS (1)
  - Headache [Recovered/Resolved]

NARRATIVE: CASE EVENT DATE: 20161211
